FAERS Safety Report 23796595 (Version 1)
Quarter: 2024Q2

REPORT INFORMATION
  Report Type: Report from Study
  Country: IN (occurrence: IN)
  Receive Date: 20240430
  Receipt Date: 20240430
  Transmission Date: 20240716
  Serious: Yes (Death, Other)
  Sender: FDA-Public Use
  Company Number: IN-CIPLA LTD.-2024IN03989

PATIENT

DRUGS (6)
  1. METOPROLOL TARTRATE [Suspect]
     Active Substance: METOPROLOL TARTRATE
     Indication: Product used for unknown indication
     Dosage: 25 MILLLIGRAM, BID (1-0-1)
     Route: 048
  2. TORSEMIDE [Suspect]
     Active Substance: TORSEMIDE
     Indication: Product used for unknown indication
     Dosage: UNK, BID (1/2-1/2-0)
     Route: 048
  3. PAN [Concomitant]
     Indication: Product used for unknown indication
     Dosage: 40 MILLIGRAM, QD (1-0-0)
     Route: 065
  4. VALENTAS [Concomitant]
     Indication: Product used for unknown indication
     Dosage: UNK (50 MG), BID (1-0-1)
     Route: 065
  5. OXRA [Concomitant]
     Indication: Product used for unknown indication
     Dosage: 5 MILLIGRAM, QD (0-1/2-0)
     Route: 065
  6. APIXABAN [Concomitant]
     Active Substance: APIXABAN
     Indication: Product used for unknown indication
     Dosage: 5 MILLIGRAM, BID (1-0-1)
     Route: 065

REACTIONS (2)
  - Renal cancer [Fatal]
  - Unevaluable event [Unknown]

NARRATIVE: CASE EVENT DATE: 20230101
